FAERS Safety Report 20692657 (Version 1)
Quarter: 2022Q2

REPORT INFORMATION
  Report Type: Report from Study
  Country: BR (occurrence: BR)
  Receive Date: 20220409
  Receipt Date: 20220409
  Transmission Date: 20220721
  Serious: Yes (Death)
  Sender: FDA-Public Use
  Company Number: BR-NOVARTISPH-NVSC2022BR081042

PATIENT
  Age: 69 Year
  Sex: Female

DRUGS (3)
  1. ATENOLOL [Suspect]
     Active Substance: ATENOLOL
     Indication: Product used for unknown indication
     Dosage: UNK (MORE OR LESS 5 YEARS AGO)
     Route: 065
  2. LOSARTAN [Suspect]
     Active Substance: LOSARTAN
     Indication: Hypertension
     Dosage: UNK (STOPPED 1,5 YEARS AGO)
     Route: 065
  3. SERETIDE [Concomitant]
     Active Substance: FLUTICASONE PROPIONATE\SALMETEROL XINAFOATE
     Indication: Product used for unknown indication
     Dosage: UNK (MORE OR LESS 5 YEARS AGO)
     Route: 065

REACTIONS (8)
  - Pulmonary embolism [Fatal]
  - Bronchial neoplasm [Fatal]
  - Lung neoplasm malignant [Fatal]
  - Hypertension [Fatal]
  - Sedation [Unknown]
  - Neoplasm [Unknown]
  - Dyspnoea [Unknown]
  - Lung disorder [Unknown]

NARRATIVE: CASE EVENT DATE: 20220325
